FAERS Safety Report 8227372-4 (Version None)
Quarter: 2012Q1

REPORT INFORMATION
  Report Type: 
  Country: None (occurrence: None)
  Receive Date: 20120322
  Receipt Date: 20120311
  Transmission Date: 20120608
  Serious: Yes (Hospitalization)
  Sender: FDA-Public Use
  Company Number: PT-RANBAXY-2012R1-53915

PATIENT
  Age: 30 Year
  Sex: Female

DRUGS (4)
  1. DEFLAZACORT [Suspect]
     Route: 065
  2. HYDROCORTISONE [Suspect]
     Route: 042
  3. DEFLAZACORT [Suspect]
     Indication: ARTHROPOD BITE
     Route: 048
  4. HYDROCORTISONE [Suspect]
     Indication: ARTHROPOD BITE
     Route: 061

REACTIONS (1)
  - HYPERSENSITIVITY [None]
